FAERS Safety Report 4614948-6 (Version None)
Quarter: 2005Q1

REPORT INFORMATION
  Report Type: 
  Country: None (occurrence: None)
  Receive Date: 20050318
  Receipt Date: 20050318
  Transmission Date: 20050727
  Serious: Yes (Hospitalization)
  Sender: FDA-Public Use
  Company Number: None

PATIENT
  Age: 43 Year
  Sex: Male
  Weight: 73.4827 kg

DRUGS (5)
  1. AZITHROMYCIN [Suspect]
     Indication: UPPER RESPIRATORY TRACT INFECTION
     Dosage: 500MG PO THEN 250 MG PO
     Route: 048
     Dates: start: 20050304, end: 20050305
  2. AZT/3TC [Concomitant]
  3. KALETRA [Concomitant]
  4. B6 [Concomitant]
  5. PPD [Concomitant]

REACTIONS (2)
  - HEPATITIS ACUTE [None]
  - URTICARIA [None]
